FAERS Safety Report 24755084 (Version 1)
Quarter: 2024Q4

REPORT INFORMATION
  Report Type: Spontaneous
  Country: US (occurrence: None)
  Receive Date: 20241218
  Receipt Date: 20241218
  Transmission Date: 20250115
  Serious: Yes (Life-Threatening, Hospitalization)
  Sender: Public
  Company Number: None

PATIENT
  Age: 71 Year
  Sex: Male
  Weight: 90 kg

DRUGS (3)
  1. METFORMIN HYDROCHLORIDE [Suspect]
     Active Substance: METFORMIN HYDROCHLORIDE
     Indication: Diabetes mellitus
     Dosage: FREQUENCY : TWICE A DAY;?
     Route: 048
  2. GLIPIZIDE [Suspect]
     Active Substance: GLIPIZIDE
  3. OZEMPIC [Suspect]
     Active Substance: SEMAGLUTIDE

REACTIONS (8)
  - Blood creatinine increased [None]
  - Blood lactic acid increased [None]
  - Back pain [None]
  - Pain [None]
  - Pain [None]
  - Blood creatine phosphokinase increased [None]
  - Dehydration [None]
  - Acute kidney injury [None]

NARRATIVE: CASE EVENT DATE: 20241016
